FAERS Safety Report 14029658 (Version 3)
Quarter: 2019Q1

REPORT INFORMATION
  Report Type: Spontaneous
  Country: US (occurrence: US)
  Receive Date: 20171002
  Receipt Date: 20190311
  Transmission Date: 20190417
  Serious: No
  Sender: FDA-Public Use
  Company Number: US-JAZZ-2017-US-009304

PATIENT
  Sex: Female

DRUGS (4)
  1. XYREM [Suspect]
     Active Substance: SODIUM OXYBATE
     Indication: SOMNOLENCE
     Dosage: 2.25G, BID
     Route: 048
     Dates: start: 20170713
  2. XYREM [Suspect]
     Active Substance: SODIUM OXYBATE
     Dosage: 3 G, BID
     Route: 048
     Dates: start: 2017
  3. XYREM [Suspect]
     Active Substance: SODIUM OXYBATE
     Indication: SOMNOLENCE
     Dosage: 4.5 G, QD
     Route: 048
     Dates: start: 2017
  4. MODAFINIL. [Suspect]
     Active Substance: MODAFINIL
     Indication: PRODUCT USED FOR UNKNOWN INDICATION

REACTIONS (7)
  - Snoring [Not Recovered/Not Resolved]
  - Migraine [Recovering/Resolving]
  - Sedation [Unknown]
  - Stress [Unknown]
  - Dizziness [Unknown]
  - Wrong technique in product usage process [Unknown]
  - Feeling drunk [Unknown]

NARRATIVE: CASE EVENT DATE: 2017
